FAERS Safety Report 9697000 (Version 1)
Quarter: 2013Q4

REPORT INFORMATION
  Report Type: Spontaneous
  Country: US (occurrence: US)
  Receive Date: 20131119
  Receipt Date: 20131119
  Transmission Date: 20140711
  Serious: No
  Sender: FDA-Public Use
  Company Number: US-SA-2013SA100765

PATIENT
  Age: 5 Year
  Sex: Female

DRUGS (1)
  1. AUVI-Q [Suspect]
     Route: 065

REACTIONS (1)
  - Accidental exposure to product [Unknown]
